FAERS Safety Report 20906338 (Version 1)
Quarter: 2022Q2

REPORT INFORMATION
  Report Type: Spontaneous
  Country: US (occurrence: US)
  Receive Date: 20220602
  Receipt Date: 20220602
  Transmission Date: 20220720
  Serious: Yes (Other)
  Sender: FDA-Public Use
  Company Number: US-drreddys-LIT/USA/22/0150679

PATIENT
  Age: 68 Year
  Sex: Male

DRUGS (4)
  1. TACROLIMUS [Suspect]
     Active Substance: TACROLIMUS
     Indication: Immunosuppressant drug therapy
  2. AZATHIOPRINE [Suspect]
     Active Substance: AZATHIOPRINE
     Indication: Immunosuppressant drug therapy
  3. DOXYCYCLINE [Concomitant]
     Active Substance: DOXYCYCLINE
     Indication: Product used for unknown indication
     Dosage: TREATED WITH TEN DAYS
     Route: 048
  4. AZITHROMYCIN [Concomitant]
     Active Substance: AZITHROMYCIN
     Indication: Product used for unknown indication
     Dosage: FOURTEEN DAYS OF
     Route: 048

REACTIONS (5)
  - Onychomycosis [Recovering/Resolving]
  - Condition aggravated [Recovering/Resolving]
  - Fungal infection [Recovering/Resolving]
  - Cellulitis staphylococcal [Recovering/Resolving]
  - Cellulitis [Recovering/Resolving]
